FAERS Safety Report 8229836-6 (Version None)
Quarter: 2012Q1

REPORT INFORMATION
  Report Type: 
  Country: None (occurrence: None)
  Receive Date: 20120323
  Receipt Date: 20120309
  Transmission Date: 20120608
  Serious: Yes (Hospitalization, Other)
  Sender: FDA-Public Use
  Company Number: CA-MYLANLABS-2010S1010664

PATIENT
  Age: 64 Year
  Sex: Female

DRUGS (13)
  1. OMEPRAZOLE [Concomitant]
     Dosage: 20MG OD
     Route: 065
  2. VENLAFAXINE [Suspect]
     Dosage: 112.5MG OD
     Route: 065
  3. METFORMIN HCL [Concomitant]
     Dosage: 1000MG BID
     Route: 065
  4. LIPITOR [Concomitant]
     Dosage: 10MG OD
     Route: 065
  5. AMIODARONE HYDROCHLORIDE [Suspect]
     Route: 041
  6. IRBESARTAN [Concomitant]
     Dosage: 150MG BID
     Route: 065
  7. LEVOTHYROXINE SODIUM [Concomitant]
     Dosage: 200 MICROG OD
     Route: 065
  8. DOMPERIDONE [Suspect]
     Dosage: 10MG TID
     Route: 065
  9. AMIODARONE HYDROCHLORIDE [Suspect]
     Dosage: 150MG BOLUS
     Route: 065
  10. FUROSEMIDE [Suspect]
     Dosage: 40MG OD
     Route: 065
  11. METOLAZONE [Suspect]
     Dosage: 2.5MG OD
     Route: 065
  12. DIGOXIN [Concomitant]
     Dosage: 0.25MG OD
     Route: 065
  13. GLYBURIDE [Concomitant]
     Dosage: 5MG BID
     Route: 065

REACTIONS (7)
  - LOSS OF CONSCIOUSNESS [None]
  - TORSADE DE POINTES [None]
  - ELECTROCARDIOGRAM QT PROLONGED [None]
  - ROAD TRAFFIC ACCIDENT [None]
  - ATRIAL FIBRILLATION [None]
  - HYPOKALAEMIA [None]
  - HYPOMAGNESAEMIA [None]
